FAERS Safety Report 9525600 (Version 1)
Quarter: 2013Q3

REPORT INFORMATION
  Report Type: Spontaneous
  Country: US (occurrence: None)
  Receive Date: 20130913
  Receipt Date: 20130913
  Transmission Date: 20140515
  Serious: Yes (Other)
  Sender: FDA-Public Use
  Company Number: None

PATIENT
  Age: 48 Year
  Sex: Female

DRUGS (1)
  1. MIRTAZAPINE, 15 MG, AUROBINDO [Suspect]
     Indication: SLEEP DISORDER
     Dosage: BEDTIME
     Route: 048

REACTIONS (2)
  - Abnormal dreams [None]
  - Nightmare [None]
